FAERS Safety Report 6367179-6 (Version None)
Quarter: 2009Q3

REPORT INFORMATION
  Report Type: 
  Country: None (occurrence: None)
  Receive Date: 20090921
  Receipt Date: 20090915
  Transmission Date: 20100115
  Serious: Yes (Hospitalization, Other)
  Sender: FDA-Public Use
  Company Number: US-BAYER-200927965NA

PATIENT
  Age: 26 Year
  Sex: Female
  Weight: 104 kg

DRUGS (2)
  1. MIRENA [Suspect]
     Indication: CONTRACEPTION
     Route: 015
     Dates: start: 20090423, end: 20090618
  2. SYNTHROID [Concomitant]
     Indication: HYPOTHYROIDISM
     Route: 048

REACTIONS (6)
  - ABDOMINAL PAIN [None]
  - IUCD COMPLICATION [None]
  - IUD MIGRATION [None]
  - PELVIC PAIN [None]
  - PROCEDURAL PAIN [None]
  - VAGINAL HAEMORRHAGE [None]
